FAERS Safety Report 6814480-5 (Version None)
Quarter: 2010Q2

REPORT INFORMATION
  Report Type: 
  Country: None (occurrence: None)
  Receive Date: 20100629
  Receipt Date: 20100617
  Transmission Date: 20101027
  Serious: Yes (Other)
  Sender: FDA-Public Use
  Company Number: 010173

PATIENT
  Age: 69 Year
  Sex: Male
  Weight: 78.9 kg

DRUGS (1)
  1. SAMSCA [Suspect]
     Indication: HYPONATRAEMIA
     Dosage: 15MG, DAILY DOSE, ORAL
     Route: 048
     Dates: start: 20100302

REACTIONS (1)
  - BLOOD SODIUM DECREASED [None]
